FAERS Safety Report 16179908 (Version 2)
Quarter: 2019Q2

REPORT INFORMATION
  Report Type: Spontaneous
  Country: JP (occurrence: JP)
  Receive Date: 20190410
  Receipt Date: 20190521
  Transmission Date: 20190711
  Serious: Yes (Hospitalization)
  Sender: FDA-Public Use
  Company Number: JP-EISAI MEDICAL RESEARCH-EC-2018-048234

PATIENT
  Age: 73 Year
  Sex: Male
  Weight: 68 kg

DRUGS (13)
  1. SPIRONOLACTONE. [Concomitant]
     Active Substance: SPIRONOLACTONE
     Indication: ASCITES
     Route: 065
     Dates: start: 20181002
  2. AMINOLEBAN [Concomitant]
     Active Substance: AMINO ACIDS
     Indication: HYPOALBUMINAEMIA
     Dosage: DOSE AND FREQUENCY UNKNOWN
     Route: 065
     Dates: start: 20180912
  3. LENVIMA [Suspect]
     Active Substance: LENVATINIB
     Route: 048
     Dates: start: 20180721, end: 20180801
  4. LICKLE [Concomitant]
     Active Substance: ISOLEUCINE\LEUCINE\VALINE
     Indication: HYPOALBUMINAEMIA
     Dosage: DOSE AND FREQUENCY UNKNOWN
     Route: 065
     Dates: start: 20180912
  5. LOPERAMIDE HYDROCHLORIDE. [Concomitant]
     Active Substance: LOPERAMIDE HYDROCHLORIDE
     Indication: DIARRHOEA
     Dosage: DOSE AND FREQUENCY UNKNOWN
     Route: 065
     Dates: start: 20180829
  6. LENVIMA [Suspect]
     Active Substance: LENVATINIB
     Indication: HEPATOCELLULAR CARCINOMA
     Route: 048
     Dates: start: 20180718, end: 20180720
  7. LENVIMA [Suspect]
     Active Substance: LENVATINIB
     Route: 048
     Dates: start: 20181106, end: 20181221
  8. FUROSEMIDE. [Concomitant]
     Active Substance: FUROSEMIDE
     Indication: ASCITES
     Route: 065
     Dates: start: 20181002
  9. SAMSCA [Concomitant]
     Active Substance: TOLVAPTAN
     Indication: PRODUCT USED FOR UNKNOWN INDICATION
     Dosage: DOSE AND FREQUENCY UNKNOWN
     Route: 065
     Dates: start: 20181009
  10. AMINOLEBAN [Concomitant]
     Active Substance: AMINO ACIDS
     Indication: MALNUTRITION
  11. LENVIMA [Suspect]
     Active Substance: LENVATINIB
     Route: 048
     Dates: start: 20180808, end: 20180926
  12. THYRADIN [Concomitant]
     Active Substance: LEVOTHYROXINE
     Indication: PRODUCT USED FOR UNKNOWN INDICATION
     Route: 065
     Dates: start: 20180926
  13. LICKLE [Concomitant]
     Active Substance: ISOLEUCINE\LEUCINE\VALINE
     Indication: MALNUTRITION

REACTIONS (12)
  - Hepatic function abnormal [Unknown]
  - Hypoalbuminaemia [Unknown]
  - Hypothyroidism [Unknown]
  - Palmar-plantar erythrodysaesthesia syndrome [Unknown]
  - Ascites [Unknown]
  - Duodenal ulcer [Unknown]
  - Malnutrition [Unknown]
  - Oedema [Unknown]
  - Renal impairment [Unknown]
  - Diarrhoea [Unknown]
  - Malaise [Unknown]
  - Anaemia [Unknown]

NARRATIVE: CASE EVENT DATE: 20180801
